FAERS Safety Report 5493815-2 (Version None)
Quarter: 2007Q4

REPORT INFORMATION
  Report Type: 
  Country: None (occurrence: None)
  Receive Date: 20071015
  Receipt Date: 20070905
  Transmission Date: 20080405
  Serious: No
  Sender: FDA-Public Use
  Company Number: 2007SP003101

PATIENT
  Sex: Male
  Weight: 113.3993 kg

DRUGS (2)
  1. LUNESTA [Suspect]
     Dosage: 3 MG; PRN; ORAL 3 MG; ORAL
     Route: 048
     Dates: start: 20070101, end: 20070101
  2. LUNESTA [Suspect]
     Dosage: 3 MG; PRN; ORAL 3 MG; ORAL
     Route: 048
     Dates: start: 20070904

REACTIONS (3)
  - DIZZINESS [None]
  - FEELING ABNORMAL [None]
  - SOMNOLENCE [None]
